FAERS Safety Report 8787686 (Version 1)
Quarter: 2012Q4

REPORT INFORMATION
  Report Type: Report from Study
  Country: MX (occurrence: MX)
  Receive Date: 20120914
  Receipt Date: 20120914
  Transmission Date: 20130627
  Serious: Yes (Hospitalization)
  Sender: FDA-Public Use
  Company Number: MX-ROCHE-1101105

PATIENT
  Age: 73 None
  Sex: Female
  Weight: 63 kg

DRUGS (3)
  1. HERCEPTIN [Suspect]
     Indication: BREAST CANCER
     Dosage: Last dose of Trastuzumab on 16/Aug/2012
     Route: 042
  2. LYRICA [Concomitant]
     Route: 048
  3. OMEPRAZOLE [Concomitant]
     Route: 048

REACTIONS (9)
  - Lacrimal disorder [Recovered/Resolved]
  - Fatigue [Not Recovered/Not Resolved]
  - Oedema [Not Recovered/Not Resolved]
  - Haemoglobin decreased [Unknown]
  - Rash [Recovered/Resolved]
  - Conjunctivitis [Recovered/Resolved]
  - Mastectomy [Recovered/Resolved]
  - Scar pain [Not Recovered/Not Resolved]
  - Venous thrombosis [Not Recovered/Not Resolved]
